FAERS Safety Report 6202097-5 (Version None)
Quarter: 2009Q2

REPORT INFORMATION
  Report Type: 
  Country: None (occurrence: None)
  Receive Date: 20090526
  Receipt Date: 20090515
  Transmission Date: 20091009
  Serious: Yes (Other)
  Sender: FDA-Public Use
  Company Number: US-JNJFOC-20090504244

PATIENT
  Sex: Female
  Weight: 72.58 kg

DRUGS (1)
  1. INVEGA [Suspect]
     Indication: BIPOLAR II DISORDER
     Route: 048

REACTIONS (4)
  - ANXIETY [None]
  - CONSTIPATION [None]
  - VENTRICULAR TACHYCARDIA [None]
  - WEIGHT INCREASED [None]
